FAERS Safety Report 9931254 (Version 2)
Quarter: 2014Q1

REPORT INFORMATION
  Report Type: Spontaneous
  Country: FR (occurrence: FR)
  Receive Date: 20140228
  Receipt Date: 20140331
  Transmission Date: 20141002
  Serious: Yes (Hospitalization)
  Sender: FDA-Public Use
  Company Number: FR-ROCHE-1357283

PATIENT
  Age: 46 Year
  Sex: Female
  Weight: 65 kg

DRUGS (5)
  1. ROACTEMRA [Suspect]
     Indication: RHEUMATOID ARTHRITIS
     Route: 041
     Dates: start: 20120828, end: 20140204
  2. CORTANCYL [Concomitant]
     Indication: RHEUMATOID ARTHRITIS
     Route: 048
  3. KARDEGIC [Concomitant]
     Route: 065
  4. INEXIUM [Concomitant]
     Route: 065
  5. TAHOR [Concomitant]
     Route: 065

REACTIONS (1)
  - Ischaemic stroke [Recovering/Resolving]
